FAERS Safety Report 13600366 (Version 1)
Quarter: 2017Q2

REPORT INFORMATION
  Report Type: Spontaneous
  Country: US (occurrence: US)
  Receive Date: 20170601
  Receipt Date: 20170601
  Transmission Date: 20170830
  Serious: No
  Sender: FDA-Public Use
  Company Number: US-PFIZER INC-2017123272

PATIENT
  Age: 57 Year
  Sex: Female

DRUGS (2)
  1. XELJANZ XR [Suspect]
     Active Substance: TOFACITINIB CITRATE
     Indication: RHEUMATOID ARTHRITIS
     Dosage: 11 MG, UNK (OVER 1 WEEK)
     Dates: start: 20170209
  2. MTX [Concomitant]
     Active Substance: METHOTREXATE SODIUM
     Dosage: 20 MG, WEEKLY

REACTIONS (14)
  - Spinal pain [Unknown]
  - Pain [Unknown]
  - Musculoskeletal stiffness [Unknown]
  - Anxiety [Unknown]
  - Fatigue [Unknown]
  - Memory impairment [Unknown]
  - Peripheral swelling [Unknown]
  - Myalgia [Unknown]
  - Disturbance in attention [Unknown]
  - Musculoskeletal pain [Unknown]
  - Arthralgia [Unknown]
  - Headache [Unknown]
  - Sleep disorder [Unknown]
  - Bone cyst [Unknown]
